FAERS Safety Report 11941348 (Version 2)
Quarter: 2017Q3

REPORT INFORMATION
  Report Type: Report from Study
  Country: RU (occurrence: RU)
  Receive Date: 20160122
  Receipt Date: 20170710
  Transmission Date: 20171127
  Serious: Yes (Other)
  Sender: FDA-Public Use
  Company Number: RU-GILEAD-2016-0193948

PATIENT
  Age: 69 Year
  Sex: Male
  Weight: 74 kg

DRUGS (8)
  1. ENALAPRIL [Concomitant]
     Active Substance: ENALAPRIL
     Indication: CORONARY ARTERY DISEASE
     Dosage: 5 MG, QD
     Route: 048
     Dates: start: 2012
  2. RANOLAZINE. [Suspect]
     Active Substance: RANOLAZINE
     Indication: ANGINA PECTORIS
     Dosage: 750 MG, BID
     Route: 048
     Dates: start: 20150603, end: 20151216
  3. SOTALOL HYDROCHLORIDE. [Concomitant]
     Active Substance: SOTALOL HYDROCHLORIDE
     Dosage: 80 MG, BID
     Dates: start: 20151217
  4. PLACEBO [Suspect]
     Active Substance: UNSPECIFIED INGREDIENT
     Indication: ANGINA PECTORIS
     Dosage: 750 MG, BID
     Route: 048
     Dates: start: 20150603, end: 20151216
  5. BIDOP [Concomitant]
     Indication: CORONARY ARTERY DISEASE
     Dosage: 5 MG, QD
     Route: 048
     Dates: start: 2012
  6. SIMVACARD [Concomitant]
     Indication: CORONARY ARTERY DISEASE
     Dosage: 20 MG, QD
     Route: 048
     Dates: start: 2012
  7. XARELTO [Concomitant]
     Active Substance: RIVAROXABAN
     Dosage: 20 MG, QD
     Dates: start: 20151217
  8. TROMBO ASS [Concomitant]
     Indication: CORONARY ARTERY DISEASE
     Dosage: 100 MG, QD
     Route: 048

REACTIONS (1)
  - Atrial fibrillation [Not Recovered/Not Resolved]

NARRATIVE: CASE EVENT DATE: 20151216
